FAERS Safety Report 23704527 (Version 2)
Quarter: 2024Q2

REPORT INFORMATION
  Report Type: Spontaneous
  Country: US (occurrence: US)
  Receive Date: 20240404
  Receipt Date: 20240429
  Transmission Date: 20240716
  Serious: No
  Sender: FDA-Public Use
  Company Number: US-SA-SAC20240329000654

PATIENT
  Sex: Female

DRUGS (1)
  1. DUPIXENT [Suspect]
     Active Substance: DUPILUMAB
     Indication: Dermatitis atopic
     Dosage: DOSE: 300MG FREQUENCY: EVERY OTHER WEEK
     Route: 058
     Dates: start: 20221202

REACTIONS (3)
  - Pruritus [Unknown]
  - Cough [Unknown]
  - Malaise [Unknown]
